FAERS Safety Report 9034738 (Version 1)
Quarter: 2013Q1

REPORT INFORMATION
  Report Type: Spontaneous
  Country: GB (occurrence: None)
  Receive Date: 20130111
  Receipt Date: 20130111
  Transmission Date: 20140127
  Serious: Yes (Hospitalization, Disabling)
  Sender: FDA-Public Use
  Company Number: 2012AP004471

PATIENT
  Age: 65 Year
  Sex: Female

DRUGS (9)
  1. ALENDRONATE (ALENDRONATE SODIUM) [Suspect]
     Indication: OSTEOPOROSIS
     Route: 048
     Dates: start: 19980101
  2. AMITRIPTYLINE (AMITRIPTYLINE) [Concomitant]
  3. AMLODIPINE (AMLODIPINE) [Concomitant]
  4. ATENOLOL (ATENOLOL) [Concomitant]
  5. BENDROFLUAZIDE (BENDROFLUMETHIAZIDE) [Concomitant]
  6. CALCICHEW (CALCIUM CARBONATE) [Concomitant]
  7. LISINOPRIL (LISINOPRIL) [Concomitant]
  8. PARACETAMOL (PARACETAMOL) [Concomitant]
  9. PIROXICAM (PIROXICAM) [Concomitant]

REACTIONS (2)
  - Oroantral fistula [None]
  - Osteonecrosis [None]
